FAERS Safety Report 8420871-1 (Version None)
Quarter: 2012Q2

REPORT INFORMATION
  Report Type: 
  Country: None (occurrence: None)
  Receive Date: 20120531
  Receipt Date: 20120515
  Transmission Date: 20120825
  Serious: Yes (Hospitalization, Other)
  Sender: FDA-Public Use
  Company Number: THQ2011A05663

PATIENT
  Age: 33 Year
  Sex: Female

DRUGS (9)
  1. DEXAMETHASONE [Suspect]
     Indication: ANTIEMETIC SUPPORTIVE CARE
     Dosage: PER ORAL
     Route: 048
     Dates: start: 20100907, end: 20100910
  2. IMMUNE GLOBULIN NOS [Suspect]
     Indication: AUTOIMMUNE THROMBOCYTOPENIA
     Dosage: 1000 MG/KG (1000 MG/KG,1 IN 1 D)  INTRAVENOUS
     Route: 042
     Dates: start: 20100222, end: 20100923
  3. IMMUNE GLOBULIN NOS [Suspect]
     Indication: HAEMATOLOGY TEST ABNORMAL
     Dosage: 1000 MG/KG (1000 MG/KG,1 IN 1 D)  INTRAVENOUS
     Route: 042
     Dates: start: 20100222, end: 20100923
  4. LANSOPRAZOLE [Suspect]
     Indication: GASTROOESOPHAGEAL REFLUX PROPHYLAXIS
     Dosage: 30 MG (30 MG,1 IN 1 D) 1) PER ORAL
     Route: 048
     Dates: start: 20100907, end: 20100928
  5. NPLATE [Suspect]
     Indication: IDIOPATHIC THROMBOCYTOPENIC PURPURA
     Dosage: (1 MG/KG) SUBCUTANEOUS
     Route: 058
     Dates: start: 20100920, end: 20100920
  6. NORETHINDRONE [Suspect]
     Dosage: PER ORAL
     Route: 048
     Dates: start: 20100920, end: 20100920
  7. TRANEXAMIC ACID [Concomitant]
     Indication: AUTOIMMUNE THROMBOCYTOPENIA
     Dosage: 4 DF (1 DF,4 IN 1 D) PER ORAL
     Route: 048
     Dates: start: 20100922, end: 20100928
  8. RITUXIMAB [Suspect]
     Indication: HAEMATOLOGY TEST ABNORMAL
     Dosage: 375 MG/M2 (375 MG/M2,2 IN 1 WK) INTRAVENOUS DRIP
     Route: 041
     Dates: start: 20100917, end: 20100924
  9. RITUXIMAB [Suspect]
     Indication: AUTOIMMUNE THROMBOCYTOPENIA
     Dosage: 375 MG/M2 (375 MG/M2,2 IN 1 WK) INTRAVENOUS DRIP
     Route: 041
     Dates: start: 20100917, end: 20100924

REACTIONS (9)
  - RASH MACULO-PAPULAR [None]
  - RECTAL HAEMORRHAGE [None]
  - HAEMORRHAGE [None]
  - MELAENA [None]
  - HAEMOGLOBIN DECREASED [None]
  - RASH ERYTHEMATOUS [None]
  - ARTHRALGIA [None]
  - VAGINAL HAEMORRHAGE [None]
  - PURPURA [None]
